FAERS Safety Report 4955198-3 (Version None)
Quarter: 2006Q1

REPORT INFORMATION
  Report Type: 
  Country: None (occurrence: None)
  Receive Date: 20060322
  Receipt Date: 20060310
  Transmission Date: 20060701
  Serious: Yes (Disabling)
  Sender: FDA-Public Use
  Company Number: 2006035184

PATIENT
  Sex: Male

DRUGS (2)
  1. LIPITOR [Suspect]
     Indication: ILL-DEFINED DISORDER
  2. CARDURA [Suspect]
     Indication: ILL-DEFINED DISORDER

REACTIONS (4)
  - CHRONIC FATIGUE SYNDROME [None]
  - DEHYDRATION [None]
  - DEPRESSION [None]
  - PAIN [None]
